FAERS Safety Report 9038091 (Version 1)
Quarter: 2013Q1

REPORT INFORMATION
  Report Type: Report from Study
  Country: US (occurrence: US)
  Receive Date: 20130129
  Receipt Date: 20130129
  Transmission Date: 20140127
  Serious: No
  Sender: FDA-Public Use
  Company Number: US-ABBOTT-12P-163-0961994-00

PATIENT
  Age: 82 None
  Sex: Male
  Weight: 81.72 kg

DRUGS (10)
  1. LUPRON DEPOT 7.5 MG [Suspect]
     Indication: PROSTATE CANCER
     Dosage: WILL BE GETTING 2ND INJECTION ON 01 AUG 2012.
     Route: 050
     Dates: start: 20120627
  2. ATENOLOL [Concomitant]
     Indication: HYPERTENSION
  3. FELODIPINE [Concomitant]
     Indication: HYPERTENSION
  4. LISINOPRIL [Concomitant]
     Indication: HYPERTENSION
  5. LOVASTATIN [Concomitant]
     Indication: BLOOD CHOLESTEROL INCREASED
  6. ASPIRIN [Concomitant]
     Indication: PRODUCT USED FOR UNKNOWN INDICATION
     Route: 048
  7. MULTIVITAMIN [Concomitant]
     Indication: PRODUCT USED FOR UNKNOWN INDICATION
  8. FAMOTIDINE [Concomitant]
     Indication: PRODUCT USED FOR UNKNOWN INDICATION
  9. VITAMIN C [Concomitant]
     Indication: PRODUCT USED FOR UNKNOWN INDICATION
  10. VITAMIN E [Concomitant]
     Indication: PRODUCT USED FOR UNKNOWN INDICATION

REACTIONS (5)
  - Cystitis [Recovering/Resolving]
  - Urine odour abnormal [Recovered/Resolved]
  - Body temperature increased [Recovered/Resolved]
  - Night sweats [Recovered/Resolved]
  - Rash macular [Not Recovered/Not Resolved]
